FAERS Safety Report 7884270-3 (Version None)
Quarter: 2011Q4

REPORT INFORMATION
  Report Type: 
  Country: None (occurrence: None)
  Receive Date: 20111102
  Receipt Date: 20111028
  Transmission Date: 20120403
  Serious: Yes (Other)
  Sender: FDA-Public Use
  Company Number: US-PFIZER INC-2011240091

PATIENT
  Sex: Female

DRUGS (4)
  1. LYRICA [Suspect]
     Indication: PAIN
  2. GABAPENTIN [Suspect]
     Indication: PAIN
  3. LYRICA [Suspect]
     Indication: FIBROMYALGIA
     Dosage: 75 MG, 2X/DAY
     Route: 048
     Dates: start: 20110919, end: 20111003
  4. GABAPENTIN [Suspect]
     Indication: FIBROMYALGIA
     Dosage: 300 MG, 3X/DAY
     Route: 048
     Dates: start: 20110901, end: 20110919

REACTIONS (4)
  - TONGUE DISCOLOURATION [None]
  - LIP DISCOLOURATION [None]
  - FEELING ABNORMAL [None]
  - PALATAL OEDEMA [None]
